FAERS Safety Report 7751896-7 (Version None)
Quarter: 2011Q3

REPORT INFORMATION
  Report Type: 
  Country: None (occurrence: None)
  Receive Date: 20110915
  Receipt Date: 20110906
  Transmission Date: 20111222
  Serious: Yes (Other)
  Sender: FDA-Public Use
  Company Number: US-JNJFOC-20110903349

PATIENT
  Sex: Male

DRUGS (6)
  1. LEVAQUIN [Suspect]
     Indication: GASTRIC DISORDER
     Route: 048
  2. ANTIBIOTICS UNSPECIFIED [Suspect]
     Indication: LUNG DISORDER
     Route: 065
  3. ANTIBIOTICS UNSPECIFIED [Suspect]
     Route: 065
  4. ANTIBIOTICS UNSPECIFIED [Suspect]
     Indication: GASTRIC DISORDER
     Route: 065
  5. ANTIBIOTICS UNSPECIFIED [Suspect]
     Route: 065
  6. LEVAQUIN [Suspect]
     Indication: LUNG DISORDER
     Route: 048

REACTIONS (13)
  - HYPERSENSITIVITY [None]
  - COUGH [None]
  - GASTRIC DISORDER [None]
  - ORAL DISCOMFORT [None]
  - ABDOMINAL PAIN UPPER [None]
  - CONDITION AGGRAVATED [None]
  - CHEST DISCOMFORT [None]
  - DYSGEUSIA [None]
  - CONTRAINDICATION TO MEDICAL TREATMENT [None]
  - EYE IRRITATION [None]
  - DRUG INEFFECTIVE [None]
  - WHEEZING [None]
  - HYPERHIDROSIS [None]
